FAERS Safety Report 10757408 (Version 1)
Quarter: 2015Q1

REPORT INFORMATION
  Report Type: Spontaneous
  Country: US (occurrence: US)
  Receive Date: 20150203
  Receipt Date: 20150203
  Transmission Date: 20150721
  Serious: No
  Sender: FDA-Public Use
  Company Number: US-BAYER-2015-015373

PATIENT
  Sex: Female

DRUGS (1)
  1. MIRENA [Suspect]
     Active Substance: LEVONORGESTREL
     Indication: OVARIAN CYST
     Dosage: 20 MCG/24HR, CONT
     Route: 015

REACTIONS (5)
  - Gastroenteritis viral [None]
  - Hepatic enzyme increased [Recovered/Resolved]
  - Product use issue [None]
  - Urticaria [Not Recovered/Not Resolved]
  - Drug ineffective for unapproved indication [None]
